FAERS Safety Report 18229690 (Version 2)
Quarter: 2020Q3

REPORT INFORMATION
  Report Type: Report from Study
  Country: AT (occurrence: AT)
  Receive Date: 20200903
  Receipt Date: 20200907
  Transmission Date: 20201104
  Serious: Yes (Life-Threatening, Hospitalization)
  Sender: FDA-Public Use
  Company Number: AT-DAIICHI SANKYO (CHINA) HOLDINGS CO., LTD.-DSU-2020-125429

PATIENT
  Age: 63 Year
  Sex: Female
  Weight: 120.3 kg

DRUGS (17)
  1. LASIX [Concomitant]
     Active Substance: FUROSEMIDE
     Indication: PRODUCT USED FOR UNKNOWN INDICATION
     Dosage: 40 MG, AS NEEDED IF NEEDED: MONDAY, WEDNESDAY, FRIDAY ONCE PER DAY
     Route: 048
  2. MAGNESIUM VERLA                    /00648601/ [Concomitant]
     Active Substance: MAGNESIUM
     Indication: PRODUCT USED FOR UNKNOWN INDICATION
     Dosage: UNK UNK, AS NEEDED
     Route: 048
  3. ONDANSAN [Concomitant]
     Active Substance: ONDANSETRON HYDROCHLORIDE
     Indication: PROPHYLAXIS OF NAUSEA AND VOMITING
     Dosage: 8 MG, AS NEEDED
     Route: 048
  4. PIPERACILLIN/TAZOBACTAM [Concomitant]
     Active Substance: PIPERACILLIN SODIUM\TAZOBACTAM SODIUM
     Dosage: 4/0.5 G, SINGLE
     Route: 042
     Dates: start: 20200819, end: 20200819
  5. PARACETAMOL KABI [Concomitant]
     Active Substance: ACETAMINOPHEN
     Dosage: 100 ML, BID
     Route: 042
     Dates: start: 20200809, end: 20200809
  6. CLAVAMOX                           /00756801/ [Concomitant]
     Indication: CHOLECYSTITIS
     Dosage: 1 G, BID
     Route: 048
     Dates: start: 20200819, end: 20200819
  7. PIPERACILLIN/TAZOBACTAM [Concomitant]
     Active Substance: PIPERACILLIN SODIUM\TAZOBACTAM SODIUM
     Dosage: 4/0.5 G, SINGLE
     Route: 042
     Dates: start: 20200809, end: 20200818
  8. CALCIDURAN [Concomitant]
     Active Substance: ASCORBIC ACID\CALCIUM PHOSPHATE\CHOLECALCIFEROL\CITRIC ACID MONOHYDRATE
     Indication: PRODUCT USED FOR UNKNOWN INDICATION
     Dosage: 500 MG, QD
     Route: 048
  9. EUTHYROX [Concomitant]
     Active Substance: LEVOTHYROXINE SODIUM
     Indication: PRODUCT USED FOR UNKNOWN INDICATION
     Dosage: 37.5 MG, QD
     Route: 048
  10. TRASTUZUMAB DERUXTECAN. [Suspect]
     Active Substance: TRASTUZUMAB DERUXTECAN
     Indication: HER2 POSITIVE BREAST CANCER
     Dosage: 5.4 MG/KG, ONCE EVERY 3 WK
     Route: 042
     Dates: start: 20200825, end: 20200825
  11. MOTILIUM [Concomitant]
     Active Substance: DOMPERIDONE
     Indication: PROPHYLAXIS OF NAUSEA AND VOMITING
     Dosage: 10 MG, TID
     Route: 048
  12. ZARZIO [Concomitant]
     Active Substance: FILGRASTIM
     Indication: PRODUCT USED FOR UNKNOWN INDICATION
     Dosage: 48 MILLION,QD
     Route: 058
     Dates: start: 20200826, end: 20200830
  13. DIPHENHYDRAMIN [Concomitant]
     Active Substance: DIPHENHYDRAMINE
     Indication: HYPERSENSITIVITY
     Dosage: 30 MG, SINGLE
     Route: 042
     Dates: start: 20200825, end: 20200825
  14. PARACETAMOL KABI [Concomitant]
     Active Substance: ACETAMINOPHEN
     Indication: CHOLECYSTITIS
     Dosage: 100 ML, SINGLE
     Route: 042
     Dates: start: 20200808, end: 20200808
  15. XGEVA [Concomitant]
     Active Substance: DENOSUMAB
     Indication: PRODUCT USED FOR UNKNOWN INDICATION
     Dosage: 120 MG, ONCE EVERY 1 MO
     Route: 058
  16. PIPERACILLIN/TAZOBACTAM [Concomitant]
     Active Substance: PIPERACILLIN SODIUM\TAZOBACTAM SODIUM
     Indication: CHOLECYSTITIS
     Dosage: 4/0.5 G, SINGLE
     Route: 042
     Dates: start: 20200808, end: 20200808
  17. ELO?MEL [Concomitant]
     Active Substance: CALCIUM CHLORIDE\MAGNESIUM CHLORIDE\POTASSIUM CHLORIDE\SODIUM ACETATE\SODIUM CHLORIDE
     Indication: CHOLECYSTITIS
     Dosage: 500 ML, QD
     Route: 042
     Dates: start: 20200808, end: 20200808

REACTIONS (3)
  - Disseminated intravascular coagulation [Not Recovered/Not Resolved]
  - Renal failure [Not Recovered/Not Resolved]
  - Blood bilirubin increased [Not Recovered/Not Resolved]

NARRATIVE: CASE EVENT DATE: 20200901
